FAERS Safety Report 8245373-7 (Version None)
Quarter: 2012Q1

REPORT INFORMATION
  Report Type: 
  Country: None (occurrence: None)
  Receive Date: 20120329
  Receipt Date: 20120320
  Transmission Date: 20120608
  Serious: Yes (Death, Other)
  Sender: FDA-Public Use
  Company Number: MA-VALEANT-2012VX001376

PATIENT
  Age: 35 Year
  Sex: Female

DRUGS (4)
  1. DOXORUBICIN HCL [Suspect]
     Route: 065
  2. THERAPEUTIC RADIOPHARMACEUTICALS [Suspect]
     Route: 065
  3. FLUOROURACIL [Suspect]
     Route: 065
  4. CYCLOPHOSPHAMIDE [Suspect]
     Route: 065

REACTIONS (9)
  - SEPTIC SHOCK [None]
  - ACUTE LYMPHOCYTIC LEUKAEMIA [None]
  - FATIGUE [None]
  - PLATELET COUNT DECREASED [None]
  - LEUKOCYTOSIS [None]
  - PANCYTOPENIA [None]
  - PYREXIA [None]
  - WHITE BLOOD CELL COUNT DECREASED [None]
  - HAEMOGLOBIN DECREASED [None]
